FAERS Safety Report 16116116 (Version 1)
Quarter: 2019Q1

REPORT INFORMATION
  Report Type: Spontaneous
  Country: RO (occurrence: RO)
  Receive Date: 20190326
  Receipt Date: 20190326
  Transmission Date: 20190418
  Serious: Yes (Other)
  Sender: FDA-Public Use
  Company Number: RO-SA-2019SA073421

PATIENT
  Age: 30 Year
  Sex: Male
  Weight: 60 kg

DRUGS (2)
  1. FOKUSIN [Suspect]
     Active Substance: TAMSULOSIN
     Dosage: UNK
     Dates: start: 20190303
  2. VIMOVO [Concomitant]
     Active Substance: ESOMEPRAZOLE MAGNESIUM\NAPROXEN

REACTIONS (1)
  - Azoospermia [Not Recovered/Not Resolved]
